FAERS Safety Report 23886710 (Version 3)
Quarter: 2024Q2

REPORT INFORMATION
  Report Type: Report from Study
  Country: US (occurrence: US)
  Receive Date: 20240522
  Receipt Date: 20240528
  Transmission Date: 20240716
  Serious: Yes (Other)
  Sender: FDA-Public Use
  Company Number: US-ABBVIE-5766701

PATIENT
  Sex: Female

DRUGS (1)
  1. SKYRIZI [Suspect]
     Active Substance: RISANKIZUMAB-RZAA
     Indication: Psoriasis
     Route: 058
     Dates: start: 20230623

REACTIONS (4)
  - Intervertebral disc operation [Not Recovered/Not Resolved]
  - Haematuria [Not Recovered/Not Resolved]
  - Back pain [Not Recovered/Not Resolved]
  - Balance disorder [Not Recovered/Not Resolved]
